FAERS Safety Report 25915561 (Version 1)
Quarter: 2025Q4

REPORT INFORMATION
  Report Type: Spontaneous
  Country: US (occurrence: US)
  Receive Date: 20251013
  Receipt Date: 20251013
  Transmission Date: 20260118
  Serious: No
  Sender: INCYTE
  Company Number: US-INCYTE CORPORATION-2025IN010832

PATIENT
  Age: 85 Year
  Weight: 53.61 kg

DRUGS (3)
  1. JAKAFI [Suspect]
     Active Substance: RUXOLITINIB
     Indication: Polycythaemia vera
     Dosage: 20 MILLIGRAM, BID, TWICE A  DAY ON MONDAY,  WEDNESDAY, AND  FRIDAY
  2. JAKAFI [Suspect]
     Active Substance: RUXOLITINIB
     Dosage: 20 MILLIGRAM, BID, TWICE A  DAY ON MONDAY,  WEDNESDAY, AND  FRIDAY
  3. JAKAFI [Suspect]
     Active Substance: RUXOLITINIB
     Dosage: 10 MILLIGRAM, BID, TWICE A DAY ON  TUESDAY,  THURSDAY,  SATURDAY, AND  SUNDAY

REACTIONS (1)
  - Eye infection [Unknown]
